FAERS Safety Report 7602487-X (Version None)
Quarter: 2011Q3

REPORT INFORMATION
  Report Type: 
  Country: None (occurrence: None)
  Receive Date: 20110712
  Receipt Date: 20110701
  Transmission Date: 20111222
  Serious: No
  Sender: FDA-Public Use
  Company Number: US-BIOGENIDEC-2011BI024421

PATIENT
  Sex: Female

DRUGS (1)
  1. AVONEX [Suspect]
     Indication: MULTIPLE SCLEROSIS
     Route: 030
     Dates: start: 20110413

REACTIONS (4)
  - BACK PAIN [None]
  - NASOPHARYNGITIS [None]
  - ABDOMINAL PAIN UPPER [None]
  - MUSCULOSKELETAL STIFFNESS [None]
